FAERS Safety Report 21848054 (Version 2)
Quarter: 2023Q1

REPORT INFORMATION
  Report Type: Spontaneous
  Country: US (occurrence: US)
  Receive Date: 20230111
  Receipt Date: 20230210
  Transmission Date: 20230418
  Serious: No
  Sender: FDA-Public Use
  Company Number: US-ALKERMES INC.-ALK-2023-000108

PATIENT
  Age: 57 Year
  Sex: Female
  Weight: 120.18 kg

DRUGS (4)
  1. ARISTADA [Suspect]
     Active Substance: ARIPIPRAZOLE LAUROXIL
     Indication: Bipolar disorder
     Dosage: 1064 MILLIGRAM
     Route: 030
     Dates: start: 20230109
  2. ARISTADA [Suspect]
     Active Substance: ARIPIPRAZOLE LAUROXIL
     Dosage: 1064 MILLIGRAM
     Route: 030
     Dates: start: 20220120
  3. ARISTADA [Suspect]
     Active Substance: ARIPIPRAZOLE LAUROXIL
     Dosage: 1064 MILLIGRAM
     Route: 030
     Dates: start: 20210914
  4. ARISTADA [Suspect]
     Active Substance: ARIPIPRAZOLE LAUROXIL
     Dosage: 1064 MILLIGRAM
     Route: 030
     Dates: start: 20200521

REACTIONS (6)
  - Off label use [Not Recovered/Not Resolved]
  - Incorrect dose administered [Unknown]
  - Wrong technique in device usage process [Not Recovered/Not Resolved]
  - Scar [Unknown]
  - Tension [Unknown]
  - Needle issue [Recovered/Resolved]

NARRATIVE: CASE EVENT DATE: 20220120
